FAERS Safety Report 9818865 (Version 6)
Quarter: 2014Q2

REPORT INFORMATION
  Report Type: Spontaneous
  Country: US (occurrence: US)
  Receive Date: 20140115
  Receipt Date: 20140611
  Transmission Date: 20141212
  Serious: Yes (Life-Threatening, Hospitalization, Disabling, Other)
  Sender: FDA-Public Use
  Company Number: US-009507513-1401USA005646

PATIENT
  Sex: Male
  Weight: 120.64 kg

DRUGS (2)
  1. JANUVIA [Suspect]
     Indication: TYPE 2 DIABETES MELLITUS
     Dosage: 100 MG, QD
     Route: 048
     Dates: start: 20080423, end: 20100917
  2. METFORMIN [Concomitant]
     Indication: TYPE 2 DIABETES MELLITUS

REACTIONS (64)
  - Acinar cell carcinoma of pancreas [Unknown]
  - Pancreaticoduodenectomy [Unknown]
  - Pancreatitis chronic [Unknown]
  - Hearing impaired [Unknown]
  - Myocardial infarction [Recovered/Resolved]
  - Coronary artery bypass [Unknown]
  - Wound secretion [Unknown]
  - Incisional drainage [Unknown]
  - Colostomy [Unknown]
  - Thoracotomy [Unknown]
  - Rotator cuff repair [Unknown]
  - Peripheral artery stent insertion [Unknown]
  - Cholecystitis [Unknown]
  - Empyema [Unknown]
  - Acute respiratory failure [Unknown]
  - Septic shock [Unknown]
  - Hypotension [Unknown]
  - Arthropathy [Unknown]
  - Limb injury [Unknown]
  - Vitamin D deficiency [Unknown]
  - Cholecystitis [Not Recovered/Not Resolved]
  - Cholelithiasis [Not Recovered/Not Resolved]
  - Hyperplastic cholecystopathy [Unknown]
  - Arteriosclerosis [Unknown]
  - Granuloma [Unknown]
  - Hypertension [Unknown]
  - Hypercholesterolaemia [Unknown]
  - Depression [Unknown]
  - Gastrooesophageal reflux disease [Not Recovered/Not Resolved]
  - Sleep apnoea syndrome [Unknown]
  - Hiatus hernia [Unknown]
  - Peripheral vascular disorder [Unknown]
  - Wound infection [Recovering/Resolving]
  - Peptic ulcer [Unknown]
  - Tinnitus [Unknown]
  - Coronary artery disease [Unknown]
  - Anxiety disorder [Unknown]
  - Abdominal abscess [Unknown]
  - Postoperative wound complication [Unknown]
  - Debridement [Unknown]
  - Abscess drainage [Unknown]
  - Pancreatic leak [Unknown]
  - Fistula [Unknown]
  - Fistula repair [Unknown]
  - Coronary angioplasty [Unknown]
  - Coronary arterial stent insertion [Unknown]
  - Hypotension [Unknown]
  - Sinus tachycardia [Unknown]
  - Abdominal hernia repair [Unknown]
  - Atelectasis [Unknown]
  - Bundle branch block left [Unknown]
  - Carotid artery stenosis [Unknown]
  - Chronic obstructive pulmonary disease [Not Recovered/Not Resolved]
  - Shoulder operation [Unknown]
  - Gastric ulcer haemorrhage [Unknown]
  - Atrial fibrillation [Unknown]
  - Infected neoplasm [Unknown]
  - Neoplasm recurrence [Unknown]
  - Infected cyst [Unknown]
  - Lymphadenopathy [Unknown]
  - Spondylolysis [Unknown]
  - Dyspepsia [Unknown]
  - Flatulence [Unknown]
  - Constipation [Not Recovered/Not Resolved]
